FAERS Safety Report 5635791-5 (Version None)
Quarter: 2008Q1

REPORT INFORMATION
  Report Type: 
  Country: None (occurrence: None)
  Receive Date: 20080221
  Receipt Date: 20080214
  Transmission Date: 20080703
  Serious: Yes (Death, Hospitalization, Other)
  Sender: FDA-Public Use
  Company Number: 130-C5013-08011585

PATIENT
  Age: 62 Year
  Sex: Male

DRUGS (3)
  1. CC-5013 (LENALIDOMIDE) (CAPSULES) [Suspect]
     Indication: CHRONIC LYMPHOCYTIC LEUKAEMIA
     Dosage: 25 MG, ORAL;15 MG,ORAL;10 MG,ORAL
     Route: 048
     Dates: start: 20070901, end: 20071201
  2. CC-5013 (LENALIDOMIDE) (CAPSULES) [Suspect]
     Indication: CHRONIC LYMPHOCYTIC LEUKAEMIA
     Dosage: 25 MG, ORAL;15 MG,ORAL;10 MG,ORAL
     Route: 048
     Dates: start: 20071201, end: 20080101
  3. CC-5013 (LENALIDOMIDE) (CAPSULES) [Suspect]
     Indication: CHRONIC LYMPHOCYTIC LEUKAEMIA
     Dosage: 25 MG, ORAL;15 MG,ORAL;10 MG,ORAL
     Route: 048
     Dates: start: 20080101

REACTIONS (7)
  - BLOOD CREATININE INCREASED [None]
  - BONE MARROW FAILURE [None]
  - DISEASE PROGRESSION [None]
  - FEBRILE NEUTROPENIA [None]
  - MULTI-ORGAN FAILURE [None]
  - PATHOGEN RESISTANCE [None]
  - URINARY TRACT INFECTION [None]
